FAERS Safety Report 25069697 (Version 5)
Quarter: 2025Q3

REPORT INFORMATION
  Report Type: Report from Study
  Country: US (occurrence: US)
  Receive Date: 20250312
  Receipt Date: 20250903
  Transmission Date: 20251021
  Serious: Yes (Hospitalization, Other)
  Sender: INSMED
  Company Number: US-INSMED, INC.-2025-00196-US

PATIENT
  Sex: Female

DRUGS (3)
  1. ARIKAYCE [Suspect]
     Active Substance: AMIKACIN
     Indication: Product used for unknown indication
     Dosage: 590 MILLIGRAM, QD
     Route: 055
     Dates: start: 20240403
  2. ARIKAYCE [Suspect]
     Active Substance: AMIKACIN
     Dosage: 590 MILLIGRAM, QD
     Route: 055
     Dates: end: 2025
  3. AMIKACIN [Concomitant]
     Active Substance: AMIKACIN
     Indication: Product used for unknown indication
     Route: 065
     Dates: start: 2025

REACTIONS (8)
  - Pulmonary cavitation [Unknown]
  - Hospitalisation [Unknown]
  - Malaise [Unknown]
  - Abdominal discomfort [Unknown]
  - Intentional dose omission [Unknown]
  - Product dose omission issue [Unknown]
  - Therapy interrupted [Unknown]
  - Drug ineffective [Unknown]
